FAERS Safety Report 15881946 (Version 1)
Quarter: 2019Q1

REPORT INFORMATION
  Report Type: Report from Study
  Country: ZA (occurrence: ZA)
  Receive Date: 20190128
  Receipt Date: 20190128
  Transmission Date: 20190417
  Serious: Yes (Life-Threatening, Other)
  Sender: FDA-Public Use
  Company Number: ZA-GILEAD-2019-0386201

PATIENT
  Age: 21 Year
  Sex: Female
  Weight: 102 kg

DRUGS (5)
  1. ISONIAZID. [Suspect]
     Active Substance: ISONIAZID
     Indication: UNEVALUABLE EVENT
     Dosage: 300 MG, QD
     Route: 048
     Dates: start: 20170912, end: 20180821
  2. PYRIDOXINE [Concomitant]
     Active Substance: PYRIDOXINE
  3. EMTRICITABINE/TENOFOVIR ALAFENAMIDE [Suspect]
     Active Substance: EMTRICITABINE\TENOFOVIR
     Indication: HIV INFECTION
     Dosage: 200/25 QD
     Route: 048
     Dates: start: 20170919, end: 20180917
  4. DOLUTEGRAVIR [Suspect]
     Active Substance: DOLUTEGRAVIR
     Indication: HIV INFECTION
     Dosage: 50 QD
     Route: 048
     Dates: start: 20170919, end: 20180917
  5. DOLUTEGRAVIR [Suspect]
     Active Substance: DOLUTEGRAVIR
     Dosage: 50 QD
     Route: 048
     Dates: start: 20181108

REACTIONS (1)
  - Transaminases increased [Recovered/Resolved]

NARRATIVE: CASE EVENT DATE: 20180913
